FAERS Safety Report 12648199 (Version 1)
Quarter: 2016Q3

REPORT INFORMATION
  Report Type: Spontaneous
  Country: CA (occurrence: CA)
  Receive Date: 20160812
  Receipt Date: 20160812
  Transmission Date: 20161109
  Serious: Yes (Other)
  Sender: FDA-Public Use
  Company Number: CA-PFIZER INC-2016227706

PATIENT
  Age: 30 Year
  Sex: Female

DRUGS (1)
  1. EPINEPHRINE. [Suspect]
     Active Substance: EPINEPHRINE
     Indication: HAEMOSTASIS
     Dosage: 1 ML OF 1:1000 INJECTION
     Route: 067
     Dates: start: 20120306

REACTIONS (7)
  - Stress cardiomyopathy [Recovered/Resolved]
  - Chest discomfort [Recovering/Resolving]
  - Blood pressure systolic increased [Recovered/Resolved]
  - Heart rate increased [Recovered/Resolved]
  - Headache [Recovered/Resolved]
  - Nausea [Recovered/Resolved]
  - Skin discolouration [Unknown]

NARRATIVE: CASE EVENT DATE: 20120306
